FAERS Safety Report 6102502-9 (Version None)
Quarter: 2009Q1

REPORT INFORMATION
  Report Type: 
  Country: None (occurrence: None)
  Receive Date: 20090224
  Receipt Date: 20090215
  Transmission Date: 20090719
  Serious: No
  Sender: FDA-Public Use
  Company Number: 2008-182821-NL

PATIENT
  Age: 61 Year
  Sex: Male

DRUGS (4)
  1. BCG LIVE [Suspect]
     Indication: TRANSITIONAL CELL CARCINOMA
     Dosage: INTRAVESICAL
     Route: 043
     Dates: start: 20080115, end: 20080226
  2. BCG LIVE [Suspect]
     Indication: TRANSITIONAL CELL CARCINOMA
     Dosage: INTRAVESICAL
     Route: 043
     Dates: start: 20080429, end: 20080513
  3. BCG LIVE [Suspect]
     Indication: TRANSITIONAL CELL CARCINOMA
     Dosage: INTRAVESICAL
     Route: 043
     Dates: start: 20080721, end: 20080721
  4. MITOMYCIN [Concomitant]

REACTIONS (10)
  - BLOOD LACTATE DEHYDROGENASE INCREASED [None]
  - C-REACTIVE PROTEIN INCREASED [None]
  - HYPOAESTHESIA [None]
  - NEUROPATHY PERIPHERAL [None]
  - PAIN IN EXTREMITY [None]
  - PARAESTHESIA [None]
  - PYREXIA [None]
  - RASH MACULAR [None]
  - RED BLOOD CELL SEDIMENTATION RATE INCREASED [None]
  - VASCULITIS [None]
